FAERS Safety Report 10973655 (Version 1)
Quarter: 2015Q1

REPORT INFORMATION
  Report Type: Spontaneous
  Country: US (occurrence: None)
  Receive Date: 20150331
  Receipt Date: 20150331
  Transmission Date: 20150721
  Serious: Yes (Other)
  Sender: FDA-Public Use
  Company Number: None

PATIENT
  Age: 33 Year
  Sex: Female
  Weight: 46.72 kg

DRUGS (1)
  1. PARAGARD T 380A [Suspect]
     Active Substance: COPPER

REACTIONS (7)
  - Crying [None]
  - Menorrhagia [None]
  - Emotional disorder [None]
  - Depression [None]
  - Anaemia [None]
  - Asthenia [None]
  - Anger [None]

NARRATIVE: CASE EVENT DATE: 20130701
